FAERS Safety Report 16573840 (Version 1)
Quarter: 2019Q3

REPORT INFORMATION
  Report Type: Spontaneous
  Country: DE (occurrence: DE)
  Receive Date: 20190715
  Receipt Date: 20190715
  Transmission Date: 20191004
  Serious: Yes (Hospitalization)
  Sender: FDA-Public Use
  Company Number: DE-PFIZER INC-2019302027

PATIENT
  Age: 69 Year
  Sex: Female

DRUGS (4)
  1. DICLOFENAC [Suspect]
     Active Substance: DICLOFENAC
     Dosage: 75 MG, UNK
     Route: 065
  2. METAMIZOL SODIUM [Concomitant]
     Active Substance: METAMIZOL SODIUM
     Dosage: UNK
  3. PANTOPRAZOLE [Suspect]
     Active Substance: PANTOPRAZOLE
     Dosage: 40 MG, 2X/DAY
     Route: 065
  4. AMLODIPINE [Concomitant]
     Active Substance: AMLODIPINE BESYLATE
     Dosage: 5 MG, UNK

REACTIONS (4)
  - Decreased appetite [Unknown]
  - Product prescribing error [Unknown]
  - Abdominal pain upper [Unknown]
  - Vomiting [Unknown]
